FAERS Safety Report 25778942 (Version 1)
Quarter: 2025Q3

REPORT INFORMATION
  Report Type: Spontaneous
  Country: US (occurrence: None)
  Receive Date: 20250908
  Receipt Date: 20250908
  Transmission Date: 20251021
  Serious: No
  Sender: FDA-CTU
  Company Number: None

PATIENT

DRUGS (1)
  1. MAVENCLAD [Suspect]
     Active Substance: CLADRIBINE

REACTIONS (22)
  - Urinary incontinence [None]
  - Anal incontinence [None]
  - Fatigue [None]
  - Fatigue [None]
  - Somnolence [None]
  - Asthenia [None]
  - Fatigue [None]
  - Diplegia [None]
  - Diplegia [None]
  - Peripheral swelling [None]
  - Discharge [None]
  - Intervertebral disc disorder [None]
  - Abdominal discomfort [None]
  - Depression [None]
  - Initial insomnia [None]
  - Gait inability [None]
  - Asthenia [None]
  - Overweight [None]
  - Feeling abnormal [None]
  - Decreased appetite [None]
  - Disturbance in attention [None]
  - Lymphoedema [None]
